FAERS Safety Report 5340833-0 (Version None)
Quarter: 2007Q2

REPORT INFORMATION
  Report Type: 
  Country: None (occurrence: None)
  Receive Date: 20070405
  Receipt Date: 20061211
  Transmission Date: 20071010
  Serious: No
  Sender: FDA-Public Use
  Company Number: US200612001628

PATIENT
  Age: 39 Year
  Sex: Female

DRUGS (3)
  1. CYMBALTA [Suspect]
     Indication: DEPRESSION
     Dosage: 30 MG, DAILY (1/D), ORAL, 30 MG, 2/D, ORAL
     Route: 048
     Dates: start: 20061001, end: 20061206
  2. CYMBALTA [Suspect]
     Indication: DEPRESSION
     Dosage: 30 MG, DAILY (1/D), ORAL, 30 MG, 2/D, ORAL
     Route: 048
     Dates: start: 20061207
  3. ADVIL [Concomitant]

REACTIONS (2)
  - DRUG EFFECT DECREASED [None]
  - VAGINAL HAEMORRHAGE [None]
